FAERS Safety Report 6330833-6 (Version None)
Quarter: 2009Q3

REPORT INFORMATION
  Report Type: 
  Country: None (occurrence: None)
  Receive Date: 20090827
  Receipt Date: 20090821
  Transmission Date: 20100115
  Serious: Yes (Hospitalization, Other)
  Sender: FDA-Public Use
  Company Number: PHHY2008CA01846

PATIENT
  Sex: Female

DRUGS (1)
  1. SANDOSTATIN LAR [Suspect]
     Indication: CARCINOID TUMOUR
     Dosage: 30 MG, QW4
     Route: 030
     Dates: start: 20050222

REACTIONS (6)
  - AMNESIA [None]
  - DIABETES MELLITUS [None]
  - HYPERTENSION [None]
  - LABILE BLOOD PRESSURE [None]
  - PNEUMONIA [None]
  - WEIGHT DECREASED [None]
